FAERS Safety Report 7849179 (Version 2)
Quarter: 2014Q1

REPORT INFORMATION
  Report Type: Spontaneous
  Country: US (occurrence: US)
  Receive Date: 20110310
  Receipt Date: 20140123
  Transmission Date: 20141002
  Serious: Yes (Hospitalization, Other)
  Sender: FDA-Public Use
  Company Number: US-BAYER-2011-020937

PATIENT
  Age: 35 Year
  Sex: Female
  Weight: 73.02 kg

DRUGS (6)
  1. YASMIN [Suspect]
     Indication: CONTRACEPTION
     Dosage: UNK
     Dates: start: 20040315, end: 20080302
  2. YASMIN [Suspect]
     Indication: OVARIAN CYST
  3. OCELLA [Suspect]
     Indication: CONTRACEPTION
     Dosage: UNK
     Dates: start: 20080806, end: 20080918
  4. OCELLA [Suspect]
     Indication: OVARIAN CYST
  5. AZITHROMYCIN [Concomitant]
     Dosage: 250 MG, UNK
     Route: 048
     Dates: start: 20051214
  6. TUSSI-12D [Concomitant]
     Dosage: UNK
     Route: 048
     Dates: start: 20051214

REACTIONS (4)
  - Pain [None]
  - Vomiting [None]
  - Cholecystectomy [None]
  - Cholecystitis chronic [None]
